FAERS Safety Report 9502468 (Version 3)
Quarter: 2013Q4

REPORT INFORMATION
  Report Type: Spontaneous
  Country: JP (occurrence: JP)
  Receive Date: 20130906
  Receipt Date: 20131004
  Transmission Date: 20140711
  Serious: Yes (Death, Hospitalization)
  Sender: FDA-Public Use
  Company Number: JP-BRISTOL-MYERS SQUIBB COMPANY-19330489

PATIENT
  Age: 87 Year
  Sex: Female
  Weight: 31 kg

DRUGS (10)
  1. ONGLYZA TABS 2.5 MG [Suspect]
     Indication: TYPE 2 DIABETES MELLITUS
     Route: 048
     Dates: start: 20130723, end: 20130815
  2. OLMETEC [Concomitant]
     Dosage: TABS
     Dates: start: 20100222
  3. AMLODIN [Concomitant]
     Dosage: TABS
     Dates: start: 20120919
  4. LASIX [Concomitant]
     Dosage: TABS
     Dates: start: 20100222
  5. PREDNISOLONE [Concomitant]
     Dosage: TABS
     Dates: start: 20130624
  6. FAMOTIDINE [Concomitant]
     Dosage: TABS
     Dates: start: 20110822
  7. CALONAL [Concomitant]
     Route: 048
  8. EPOETIN ALFA [Concomitant]
     Dosage: INJ
     Dates: start: 20130329
  9. EFFORTIL [Concomitant]
     Dosage: INJ
     Dates: start: 20130605
  10. FESIN [Concomitant]
     Dates: start: 20130719, end: 20130809

REACTIONS (2)
  - Renal failure chronic [Fatal]
  - Hepatic function abnormal [Unknown]
